FAERS Safety Report 23622041 (Version 2)
Quarter: 2024Q1

REPORT INFORMATION
  Report Type: Spontaneous
  Country: CO (occurrence: CO)
  Receive Date: 20240312
  Receipt Date: 20240328
  Transmission Date: 20240409
  Serious: No
  Sender: FDA-Public Use
  Company Number: CO-PFIZER INC-PV202400022656

PATIENT
  Age: 15 Year
  Sex: Male

DRUGS (3)
  1. GENOTROPIN [Suspect]
     Active Substance: SOMATROPIN
     Dosage: 0.9 MG, DAILY
     Route: 058
     Dates: start: 202312
  2. GENOTROPIN [Suspect]
     Active Substance: SOMATROPIN
     Dosage: 1.0 MG, DAILY
     Route: 058
  3. DUPILUMAB [Concomitant]
     Active Substance: DUPILUMAB
     Dosage: UNK

REACTIONS (2)
  - Product prescribing error [Unknown]
  - Wrong technique in device usage process [Unknown]
